FAERS Safety Report 10521034 (Version 2)
Quarter: 2014Q4

REPORT INFORMATION
  Report Type: Spontaneous
  Country: NL (occurrence: NL)
  Receive Date: 20141016
  Receipt Date: 20141027
  Transmission Date: 20150528
  Serious: Yes (Death)
  Sender: FDA-Public Use
  Company Number: NL-ABBVIE-14P-114-1295962-00

PATIENT
  Age: 65 Year
  Sex: Male
  Weight: 80 kg

DRUGS (2)
  1. HUMIRA [Suspect]
     Active Substance: ADALIMUMAB
     Indication: PSORIASIS
     Route: 058
     Dates: start: 20090202
  2. ENBREL [Concomitant]
     Active Substance: ETANERCEPT
     Indication: PRODUCT USED FOR UNKNOWN INDICATION
     Dosage: INJPDR FLACON 10MG+SOLVENS 1ML+TOEBEHOREN
     Route: 058

REACTIONS (1)
  - Lung neoplasm [Fatal]

NARRATIVE: CASE EVENT DATE: 20110112
